FAERS Safety Report 12240046 (Version 21)
Quarter: 2020Q2

REPORT INFORMATION
  Report Type: Report from Study
  Country: US (occurrence: US)
  Receive Date: 20160405
  Receipt Date: 20200527
  Transmission Date: 20200713
  Serious: Yes (Hospitalization, Other)
  Sender: FDA-Public Use
  Company Number: PHHY2016US042656

PATIENT
  Age: 42 Year
  Sex: Female
  Weight: 59.41 kg

DRUGS (23)
  1. PHENERGAN [Concomitant]
     Active Substance: PROMETHAZINE HYDROCHLORIDE
     Indication: NAUSEA
     Dosage: 50 MG, 1 TABLET EVERY 6 HOURS AS NEEDED
     Route: 048
     Dates: start: 20140307, end: 20140307
  2. PRILOSEC [Concomitant]
     Active Substance: OMEPRAZOLE MAGNESIUM
     Indication: PRODUCT USED FOR UNKNOWN INDICATION
     Dosage: 40 MG, BID
     Route: 048
  3. VALTREX [Concomitant]
     Active Substance: VALACYCLOVIR HYDROCHLORIDE
     Indication: PRODUCT USED FOR UNKNOWN INDICATION
     Dosage: 1 G, QD
     Route: 048
  4. PSYLLIUM [Concomitant]
     Active Substance: PLANTAGO SEED
     Indication: PRODUCT USED FOR UNKNOWN INDICATION
     Dosage: 1 PACKET, QD
     Route: 048
  5. ZITHROMAX [Concomitant]
     Active Substance: AZITHROMYCIN DIHYDRATE
     Indication: PRODUCT USED FOR UNKNOWN INDICATION
     Dosage: 500 MG, UNK
     Route: 042
  6. METAMUCIL [Concomitant]
     Active Substance: PLANTAGO SEED
     Indication: PRODUCT USED FOR UNKNOWN INDICATION
     Dosage: 1 DF (1 PACKET), QD
     Route: 048
  7. ADIPEX-P [Concomitant]
     Active Substance: PHENTERMINE HYDROCHLORIDE
     Indication: PRODUCT USED FOR UNKNOWN INDICATION
     Dosage: 37.5 MG, QD
     Route: 048
  8. TOPAMAX [Concomitant]
     Active Substance: TOPIRAMATE
     Indication: PRODUCT USED FOR UNKNOWN INDICATION
     Dosage: 1 DF, BID
     Route: 048
  9. GILENYA [Suspect]
     Active Substance: FINGOLIMOD HYDROCHLORIDE
     Indication: RELAPSING-REMITTING MULTIPLE SCLEROSIS
     Dosage: QD
     Route: 048
     Dates: start: 20140707
  10. LASIX [Concomitant]
     Active Substance: FUROSEMIDE
     Indication: PRODUCT USED FOR UNKNOWN INDICATION
     Dosage: 40 MG, QD
     Route: 048
  11. BENADRYL [Concomitant]
     Active Substance: DIPHENHYDRAMINE HYDROCHLORIDE
     Indication: FLUSHING
     Dosage: 25 MG, UNK
     Route: 065
     Dates: start: 20140307, end: 20140307
  12. XANAX [Concomitant]
     Active Substance: ALPRAZOLAM
     Indication: PRODUCT USED FOR UNKNOWN INDICATION
     Dosage: 1 MG, 1 TABLET EVERY 8 HOURS AS NEEDED
     Route: 048
  13. PROVENTIL [Concomitant]
     Active Substance: ALBUTEROL
     Indication: CHRONIC OBSTRUCTIVE PULMONARY DISEASE
     Dosage: 0.5 ML, EVERY 5 MIN PRN
     Route: 055
  14. BIOTIN [Concomitant]
     Active Substance: BIOTIN
     Indication: PRODUCT USED FOR UNKNOWN INDICATION
     Dosage: 1 DF, QD
     Route: 048
  15. PROZAC [Concomitant]
     Active Substance: FLUOXETINE HYDROCHLORIDE
     Indication: PRODUCT USED FOR UNKNOWN INDICATION
     Dosage: 1 DF, BID
     Route: 048
  16. NEURONTIN [Concomitant]
     Active Substance: GABAPENTIN
     Indication: PRODUCT USED FOR UNKNOWN INDICATION
     Dosage: 1 DF, TID
     Route: 048
  17. DUONEB [Concomitant]
     Active Substance: ALBUTEROL SULFATE\IPRATROPIUM BROMIDE
     Indication: CHRONIC OBSTRUCTIVE PULMONARY DISEASE
     Dosage: 3 ML, UNK
     Route: 055
  18. IMITREX [Concomitant]
     Active Substance: SUMATRIPTAN SUCCINATE
     Indication: HEADACHE
     Dosage: 200 MG, QD
     Route: 048
  19. CATAPRES [Concomitant]
     Active Substance: CLONIDINE HYDROCHLORIDE
     Indication: PRODUCT USED FOR UNKNOWN INDICATION
     Dosage: 0.1 MG, AT BED TIME
     Route: 048
  20. ZANAFLEX [Concomitant]
     Active Substance: TIZANIDINE HYDROCHLORIDE
     Indication: PRODUCT USED FOR UNKNOWN INDICATION
     Dosage: 4 MG, QD (AT BED TIME)
     Route: 048
  21. ALBUTEROL SULFATE. [Concomitant]
     Active Substance: ALBUTEROL SULFATE
     Indication: PRODUCT USED FOR UNKNOWN INDICATION
     Dosage: 2 PUFFS AS NEEDED, EVERY 4 TO 6 HOURS
     Route: 055
  22. ROCEPHIN [Concomitant]
     Active Substance: CEFTRIAXONE SODIUM
     Indication: PRODUCT USED FOR UNKNOWN INDICATION
     Dosage: 1 G, UNK
     Route: 042
  23. MULTI VITAMIN [Concomitant]
     Active Substance: VITAMINS
     Indication: PRODUCT USED FOR UNKNOWN INDICATION
     Dosage: 1 DF, QD
     Route: 048

REACTIONS (22)
  - Hypoxia [Recovered/Resolved]
  - Urinary hesitation [Recovered/Resolved]
  - Fall [Recovered/Resolved]
  - Pain [Recovered/Resolved]
  - Fall [Recovered/Resolved]
  - Blood glucose increased [Unknown]
  - Intervertebral disc protrusion [Not Recovered/Not Resolved]
  - Ophthalmic herpes zoster [Recovering/Resolving]
  - Acute respiratory failure [Recovered/Resolved]
  - Pneumonia mycoplasmal [Recovered/Resolved]
  - Herpes zoster [Recovering/Resolving]
  - Fall [Recovered/Resolved]
  - Blood calcium decreased [Unknown]
  - Spinal pain [Unknown]
  - Intervertebral disc degeneration [Not Recovered/Not Resolved]
  - Visual impairment [Unknown]
  - Spinal compression fracture [Unknown]
  - Anion gap increased [Unknown]
  - Heart rate decreased [Unknown]
  - Pain in extremity [Unknown]
  - Chest discomfort [Recovered/Resolved]
  - Post-traumatic pain [Recovered/Resolved]

NARRATIVE: CASE EVENT DATE: 20160115
